FAERS Safety Report 21903204 (Version 1)
Quarter: 2023Q1

REPORT INFORMATION
  Report Type: Spontaneous
  Country: GR (occurrence: GR)
  Receive Date: 20230124
  Receipt Date: 20230124
  Transmission Date: 20230418
  Serious: Yes (Hospitalization, Other)
  Sender: FDA-Public Use
  Company Number: GR-MACLEODS PHARMACEUTICALS US LTD-MAC2023039366

PATIENT

DRUGS (12)
  1. VENLAFAXINE [Suspect]
     Active Substance: VENLAFAXINE HYDROCHLORIDE
     Indication: Major depression
     Dosage: UNK
     Route: 065
  2. VENLAFAXINE [Suspect]
     Active Substance: VENLAFAXINE HYDROCHLORIDE
     Dosage: UNK (DOSE REDUCED BY HALF)
     Route: 065
  3. MIRTAZAPINE [Concomitant]
     Active Substance: MIRTAZAPINE
     Indication: Major depression
     Dosage: UNK
     Route: 065
  4. SEVOFLURANE [Concomitant]
     Active Substance: SEVOFLURANE
     Indication: Maintenance of anaesthesia
     Dosage: UNK
     Route: 065
  5. QUETIAPINE [Concomitant]
     Active Substance: QUETIAPINE
     Indication: Major depression
     Dosage: UNK
     Route: 065
  6. LAMOTRIGINE [Concomitant]
     Active Substance: LAMOTRIGINE
     Indication: Major depression
     Dosage: UNK
     Route: 065
  7. ROCURONIUM [Concomitant]
     Active Substance: ROCURONIUM BROMIDE
     Indication: Induction of anaesthesia
     Dosage: 60 MILLIGRAM
     Route: 042
  8. FENTANYL [Concomitant]
     Active Substance: FENTANYL
     Indication: Induction of anaesthesia
     Dosage: 550 MICROGRAM, SINGLE (TOTAL)
     Route: 042
  9. FENTANYL [Concomitant]
     Active Substance: FENTANYL
     Dosage: 150 MICROGRAM
     Route: 042
  10. LITHIUM [Concomitant]
     Active Substance: LITHIUM
     Indication: Major depression
     Dosage: UNK
     Route: 065
  11. PROPOFOL [Concomitant]
     Active Substance: PROPOFOL
     Indication: Induction of anaesthesia
     Dosage: 200 MILLIGRAM
     Route: 042
  12. LORAZEPAM [Concomitant]
     Active Substance: LORAZEPAM
     Indication: Major depression
     Dosage: UNK
     Route: 065

REACTIONS (3)
  - Serotonin syndrome [Recovering/Resolving]
  - Hypertension [Recovering/Resolving]
  - Hypertension [Recovering/Resolving]
